FAERS Safety Report 7767386-1 (Version None)
Quarter: 2011Q3

REPORT INFORMATION
  Report Type: 
  Country: None (occurrence: None)
  Receive Date: 20110922
  Receipt Date: 20100302
  Transmission Date: 20111222
  Serious: No
  Sender: FDA-Public Use
  Company Number: US-ASTRAZENECA-2010SE52189

PATIENT

DRUGS (5)
  1. THORAZINE [Concomitant]
     Dosage: 100 MG QHS AS NEEDED
     Dates: start: 20060203
  2. ADDERALL 5 [Concomitant]
     Dosage: 20 MCG BID, 20 MG 2 AM, 1 PM
     Dates: start: 20040107
  3. XANAX [Concomitant]
     Dates: start: 20040107
  4. PROZAC [Concomitant]
     Dates: start: 20040107
  5. SEROQUEL [Suspect]
     Route: 048
     Dates: start: 20040107

REACTIONS (2)
  - OBSESSIVE-COMPULSIVE DISORDER [None]
  - ANTISOCIAL PERSONALITY DISORDER [None]
